FAERS Safety Report 14542922 (Version 3)
Quarter: 2018Q3

REPORT INFORMATION
  Report Type: Spontaneous
  Country: GB (occurrence: GB)
  Receive Date: 20180216
  Receipt Date: 20180829
  Transmission Date: 20181010
  Serious: Yes (Death, Hospitalization)
  Sender: FDA-Public Use
  Company Number: PHHY2018GB026201

PATIENT
  Age: 65 Year
  Sex: Female
  Weight: 143 kg

DRUGS (2)
  1. SIMVASTATIN. [Interacting]
     Active Substance: SIMVASTATIN
     Indication: CEREBROVASCULAR ACCIDENT
     Dosage: UNK
     Route: 065
  2. ITRACONAZOLE. [Suspect]
     Active Substance: ITRACONAZOLE
     Indication: SEVERE ASTHMA WITH FUNGAL SENSITISATION
     Dosage: 400 MG, QD
     Route: 065
     Dates: start: 20170427, end: 201705

REACTIONS (12)
  - Hyperkalaemia [Not Recovered/Not Resolved]
  - Urosepsis [Not Recovered/Not Resolved]
  - Anuria [Not Recovered/Not Resolved]
  - Chromaturia [Unknown]
  - Contraindicated drug prescribed [Not Recovered/Not Resolved]
  - Dyspnoea [Unknown]
  - Labelled drug-drug interaction medication error [Not Recovered/Not Resolved]
  - Dehydration [Unknown]
  - Rhabdomyolysis [Fatal]
  - Acute kidney injury [Not Recovered/Not Resolved]
  - Dysuria [Not Recovered/Not Resolved]
  - Urinary tract infection [Unknown]

NARRATIVE: CASE EVENT DATE: 20170522
